FAERS Safety Report 25614725 (Version 1)
Quarter: 2025Q3

REPORT INFORMATION
  Report Type: Spontaneous
  Country: GB (occurrence: GB)
  Receive Date: 20250729
  Receipt Date: 20250729
  Transmission Date: 20251020
  Serious: Yes (Other)
  Sender: CELLTRION
  Company Number: GB-BAXTER-2025BAX018519

PATIENT

DRUGS (6)
  1. INFLIXIMAB [Suspect]
     Active Substance: INFLIXIMAB
     Indication: Crohn^s disease
     Route: 042
  2. INFLIXIMAB [Suspect]
     Active Substance: INFLIXIMAB
  3. SODIUM CHLORIDE [Suspect]
     Active Substance: SODIUM CHLORIDE
     Indication: Product used for unknown indication
     Route: 042
  4. SODIUM CHLORIDE [Suspect]
     Active Substance: SODIUM CHLORIDE
  5. WATER [Suspect]
     Active Substance: WATER
     Indication: Product used for unknown indication
     Route: 042
  6. WATER [Suspect]
     Active Substance: WATER

REACTIONS (6)
  - Rectal haemorrhage [Unknown]
  - Haemorrhoids [Unknown]
  - Anal erythema [Unknown]
  - Anal inflammation [Unknown]
  - Weight decreased [Unknown]
  - Intentional product use issue [Unknown]
